FAERS Safety Report 6137535-X (Version None)
Quarter: 2009Q1

REPORT INFORMATION
  Report Type: 
  Country: None (occurrence: None)
  Receive Date: 20090326
  Receipt Date: 20090318
  Transmission Date: 20090719
  Serious: Yes (Hospitalization)
  Sender: FDA-Public Use
  Company Number: 2009EU000421

PATIENT
  Age: 60 Year
  Sex: Female

DRUGS (4)
  1. TACROLIMUS [Suspect]
     Dosage: 9 MG, UID/QD,
  2. AZATHIOPRINE [Suspect]
     Indication: LIVER TRANSPLANT
     Dosage: 125 MG,
  3. GANCICLOVIR (GANCICLOVIR SODIUM) [Concomitant]
  4. PIPERACILLIN SODIUM AND TAZOBACTAM SODIUM [Concomitant]

REACTIONS (11)
  - ASPARTATE AMINOTRANSFERASE INCREASED [None]
  - BLOOD ALKALINE PHOSPHATASE INCREASED [None]
  - BLOOD CREATININE INCREASED [None]
  - CYTOMEGALOVIRUS INFECTION [None]
  - HAEMOGLOBIN DECREASED [None]
  - NIGHT SWEATS [None]
  - PALLOR [None]
  - PERICARDIAL EFFUSION [None]
  - PERICARDITIS TUBERCULOUS [None]
  - RESPIRATORY TRACT INFECTION [None]
  - TACHYCARDIA [None]
